FAERS Safety Report 4523022-9 (Version None)
Quarter: 2004Q4

REPORT INFORMATION
  Report Type: 
  Country: None (occurrence: None)
  Receive Date: 20041208
  Receipt Date: 20041129
  Transmission Date: 20050328
  Serious: No
  Sender: FDA-Public Use
  Company Number: DEU-2004-0001148

PATIENT
  Age: 51 Year
  Sex: Male

DRUGS (3)
  1. PALLADONE [Suspect]
     Dosage: 32 MG, BID, ORAL
     Route: 048
     Dates: start: 20040701
  2. PALLADONE [Suspect]
     Indication: PAIN
     Dosage: 2.6 MG, PM, ORAL
     Route: 048
     Dates: start: 20040701
  3. RIFUN (PANTOPRAZOLE SODIUM) [Concomitant]

REACTIONS (3)
  - BREAST PAIN [None]
  - DYSPNOEA [None]
  - GYNAECOMASTIA [None]
